FAERS Safety Report 11092115 (Version 1)
Quarter: 2015Q2

REPORT INFORMATION
  Report Type: Spontaneous
  Country: US (occurrence: US)
  Receive Date: 20150505
  Receipt Date: 20150505
  Transmission Date: 20150821
  Serious: Yes (Other)
  Sender: FDA-Public Use
  Company Number: PHHY2015US052278

PATIENT
  Age: 81 Year
  Sex: Male

DRUGS (1)
  1. CARBOPLATIN. [Suspect]
     Active Substance: CARBOPLATIN
     Indication: MESOTHELIOMA
     Route: 065

REACTIONS (5)
  - Nausea [Unknown]
  - Abnormal loss of weight [Unknown]
  - Abdominal pain upper [Unknown]
  - Vomiting [Unknown]
  - Superior mesenteric artery syndrome [Unknown]
